FAERS Safety Report 19687549 (Version 1)
Quarter: 2021Q3

REPORT INFORMATION
  Report Type: Spontaneous
  Country: US (occurrence: US)
  Receive Date: 20210811
  Receipt Date: 20210811
  Transmission Date: 20211014
  Serious: No
  Sender: FDA-Public Use
  Company Number: US-INSUD PHARMA-2108US00863

PATIENT

DRUGS (2)
  1. ISIBLOOM [Suspect]
     Active Substance: DESOGESTREL\ETHINYL ESTRADIOL
     Dosage: STOPPED THE PILLS FOR TWO WEEKS AND RESTARTED THEM
  2. ISIBLOOM [Suspect]
     Active Substance: DESOGESTREL\ETHINYL ESTRADIOL
     Indication: HEAVY MENSTRUAL BLEEDING
     Dosage: UNK
     Route: 048

REACTIONS (11)
  - Dysmenorrhoea [Not Recovered/Not Resolved]
  - Product appearance confusion [Unknown]
  - Anxiety [Not Recovered/Not Resolved]
  - Depression [Not Recovered/Not Resolved]
  - Intermenstrual bleeding [Not Recovered/Not Resolved]
  - Nausea [Not Recovered/Not Resolved]
  - Product use in unapproved indication [Unknown]
  - Migraine [Not Recovered/Not Resolved]
  - Amenorrhoea [Recovered/Resolved]
  - Back pain [Not Recovered/Not Resolved]
  - Diarrhoea [Not Recovered/Not Resolved]

NARRATIVE: CASE EVENT DATE: 2021
